FAERS Safety Report 21486641 (Version 1)
Quarter: 2022Q4

REPORT INFORMATION
  Report Type: Spontaneous
  Country: US (occurrence: None)
  Receive Date: 20221019
  Receipt Date: 20221019
  Transmission Date: 20230113
  Serious: Yes (Death)
  Sender: FDA-Public Use
  Company Number: None

PATIENT
  Age: 50 Year
  Sex: Female

DRUGS (7)
  1. INGREZZA [Suspect]
     Active Substance: VALBENAZINE
     Indication: Movement disorder
     Dosage: FREQUENCY : DAILY;?
     Route: 048
     Dates: start: 20220225, end: 20221019
  2. ATROPINE SULFATE 1% OPTH SOLUTION [Concomitant]
  3. FLUTICASONE [Concomitant]
     Active Substance: FLUTICASONE
  4. HALOPERIDOL [Concomitant]
     Active Substance: HALOPERIDOL
  5. LORAZEPAM [Concomitant]
     Active Substance: LORAZEPAM
  6. TIZANIDINE [Concomitant]
     Active Substance: TIZANIDINE
  7. TYLENOL [Concomitant]
     Active Substance: ACETAMINOPHEN

REACTIONS (1)
  - Disease progression [None]

NARRATIVE: CASE EVENT DATE: 20221019
